FAERS Safety Report 4387592-6 (Version None)
Quarter: 2004Q2

REPORT INFORMATION
  Report Type: 
  Country: None (occurrence: None)
  Receive Date: 20040625
  Receipt Date: 20040614
  Transmission Date: 20050107
  Serious: Yes (Hospitalization)
  Sender: FDA-Public Use
  Company Number: 2004031877

PATIENT
  Age: 74 Year
  Sex: Male

DRUGS (7)
  1. ZITHROMAX [Suspect]
     Indication: UPPER RESPIRATORY TRACT INFECTION
     Dosage: 500 MG (500 MG 1 IN 1 D) ORAL
     Route: 048
     Dates: start: 20031216, end: 20031218
  2. SIMVASTATIN [Suspect]
     Indication: HYPERCHOLESTEROLAEMIA
     Dosage: 80 MG (80 MG, 1 IN 1 D) ORAL
     Route: 048
     Dates: start: 20020527, end: 20031225
  3. ACETYLSALICYLIC ACID SRT [Concomitant]
  4. AMIODARONE HCL [Concomitant]
  5. CANDESARTAN CILEXETIL (CANDESARTAN CILEXETIL) [Concomitant]
  6. TORSEMIDE [Concomitant]
  7. PROPANOLOL HYDROCHLORIDE (PROPRANOLOL HYDROCHLORIDE) [Concomitant]

REACTIONS (1)
  - RHABDOMYOLYSIS [None]
